FAERS Safety Report 8598109-4 (Version None)
Quarter: 2012Q3

REPORT INFORMATION
  Report Type: 
  Country: None (occurrence: None)
  Receive Date: 20120802
  Receipt Date: 20120724
  Transmission Date: 20120928
  Serious: Yes (Other)
  Sender: FDA-Public Use
  Company Number: 1207-396

PATIENT
  Age: 80 Year
  Sex: Female
  Weight: 47.6277 kg

DRUGS (4)
  1. KEPPRA [Concomitant]
  2. EYLEA [Suspect]
     Indication: MACULAR DEGENERATION
     Dosage: INTRAVITREAL
     Dates: start: 20120605
  3. SYNTHROID [Concomitant]
  4. DILANTIN [Concomitant]

REACTIONS (1)
  - CONVULSION [None]
